FAERS Safety Report 13930423 (Version 1)
Quarter: 2017Q3

REPORT INFORMATION
  Report Type: Spontaneous
  Country: CA (occurrence: CA)
  Receive Date: 20170901
  Receipt Date: 20170901
  Transmission Date: 20171127
  Serious: Yes (Other)
  Sender: FDA-Public Use
  Company Number: CA-ABBVIE-17P-028-2090445-00

PATIENT
  Sex: Female

DRUGS (2)
  1. LANSOPRAZOLE. [Concomitant]
     Active Substance: LANSOPRAZOLE
     Indication: PRODUCT USED FOR UNKNOWN INDICATION
     Dosage: UNK
  2. BIAXIN [Suspect]
     Active Substance: CLARITHROMYCIN
     Indication: INFECTION
     Dosage: 1000 MG, BID
     Route: 048
     Dates: start: 20170810, end: 20170817

REACTIONS (4)
  - Incorrect dose administered [Recovered/Resolved]
  - Corneal opacity [Not Recovered/Not Resolved]
  - Vision blurred [Not Recovered/Not Resolved]
  - Product selection error [Recovered/Resolved]

NARRATIVE: CASE EVENT DATE: 20170810
